FAERS Safety Report 18366211 (Version 1)
Quarter: 2020Q4

REPORT INFORMATION
  Report Type: Spontaneous
  Country: IT (occurrence: IT)
  Receive Date: 20201009
  Receipt Date: 20201009
  Transmission Date: 20210114
  Serious: Yes (Other)
  Sender: FDA-Public Use
  Company Number: IT-PFIZER INC-2020388169

PATIENT
  Age: 75 Year
  Sex: Female

DRUGS (2)
  1. TEGRETOL [Concomitant]
     Active Substance: CARBAMAZEPINE
     Indication: EPILEPSY
     Dosage: 1 DF, 1X/DAY
     Route: 048
  2. XANAX [Suspect]
     Active Substance: ALPRAZOLAM
     Indication: EPILEPSY
     Dosage: 10 DF, TOTAL
     Route: 048
     Dates: start: 20181103, end: 20181103

REACTIONS (8)
  - Product use in unapproved indication [Unknown]
  - Sopor [Recovering/Resolving]
  - Off label use [Unknown]
  - Bradyphrenia [Recovering/Resolving]
  - Speech disorder [Recovering/Resolving]
  - Drug abuse [Recovering/Resolving]
  - Foaming at mouth [Recovering/Resolving]
  - Confusional state [Recovering/Resolving]

NARRATIVE: CASE EVENT DATE: 20181103
